FAERS Safety Report 6691124-7 (Version None)
Quarter: 2010Q2

REPORT INFORMATION
  Report Type: 
  Country: None (occurrence: None)
  Receive Date: 20100422
  Receipt Date: 20100412
  Transmission Date: 20101027
  Serious: No
  Sender: FDA-Public Use
  Company Number: US-BIOGENIDEC-2010BI011888

PATIENT
  Age: 49 Year
  Sex: Female

DRUGS (1)
  1. TYSABRI [Suspect]
     Indication: MULTIPLE SCLEROSIS
     Route: 042
     Dates: start: 20070102

REACTIONS (5)
  - FATIGUE [None]
  - HEADACHE [None]
  - MULTIPLE SCLEROSIS RELAPSE [None]
  - VEIN DISORDER [None]
  - VENOUS INJURY [None]
